FAERS Safety Report 7735091-3 (Version None)
Quarter: 2011Q3

REPORT INFORMATION
  Report Type: 
  Country: None (occurrence: None)
  Receive Date: 20110907
  Receipt Date: 20110901
  Transmission Date: 20111222
  Serious: Yes (Life-Threatening, Hospitalization)
  Sender: FDA-Public Use
  Company Number: GB-ELI_LILLY_AND_COMPANY-GB201109000925

PATIENT
  Sex: Female

DRUGS (4)
  1. VITAMIN B-12 [Concomitant]
     Dosage: UNK
     Dates: start: 20110729
  2. FOLIC ACID [Concomitant]
     Route: 048
  3. CISPLATIN [Concomitant]
     Indication: LUNG ADENOCARCINOMA STAGE IV
  4. ALIMTA [Suspect]
     Indication: LUNG ADENOCARCINOMA STAGE IV
     Dosage: UNK
     Dates: start: 20110822

REACTIONS (2)
  - DIARRHOEA [None]
  - CEREBROVASCULAR ACCIDENT [None]
